FAERS Safety Report 4839318-7 (Version None)
Quarter: 2005Q4

REPORT INFORMATION
  Report Type: 
  Country: None (occurrence: None)
  Receive Date: 20051129
  Receipt Date: 20041230
  Transmission Date: 20060501
  Serious: No
  Sender: FDA-Public Use
  Company Number: US-GLAXOSMITHKLINE-A0538846A

PATIENT
  Sex: Female

DRUGS (4)
  1. WELLBUTRIN [Suspect]
     Indication: DEPRESSION
     Dosage: 300MG PER DAY
     Route: 048
     Dates: end: 20041101
  2. MULTI-VITAMINS [Concomitant]
  3. VITAMIN B-12 [Concomitant]
  4. IRON SUPPLEMENT [Concomitant]

REACTIONS (1)
  - MOUTH ULCERATION [None]
